FAERS Safety Report 8502010 (Version 3)
Quarter: 2013Q3

REPORT INFORMATION
  Report Type: Report from Study
  Country: MX (occurrence: MX)
  Receive Date: 20120410
  Receipt Date: 20130715
  Transmission Date: 20140515
  Serious: Yes (Other)
  Sender: FDA-Public Use
  Company Number: PHHY2012MX029763

PATIENT
  Age: 55 Year
  Sex: Female

DRUGS (6)
  1. ACLASTA [Suspect]
     Indication: OSTEOPOROSIS
     Dosage: 5 MG/100 ML/YEAR
     Route: 042
     Dates: start: 20110415
  2. HYDROCORTISONE [Concomitant]
     Dosage: 20 MG, (HALF TABLET EVERY 12 HOURS)
     Route: 048
     Dates: start: 20120112
  3. DOLO-NEUROBION FORTE [Concomitant]
     Indication: MYALGIA
     Dosage: UNK UKN, UNK
     Dates: start: 20120112
  4. SOPHIXIN [Concomitant]
     Dosage: UNK UKN, UNK
     Dates: start: 20120209
  5. FLUMETOL [Concomitant]
     Dosage: 1 DROPS EVERY 24 HOURS
     Dates: start: 20120126
  6. DICLOFENAC [Concomitant]
     Dosage: 1 DROP (1MG) IN EACH EYE 2 TIMES A DAY
     Dates: start: 20120209

REACTIONS (10)
  - Optic neuropathy [Unknown]
  - Photophobia [Not Recovered/Not Resolved]
  - Delirium [Recovered/Resolved]
  - Visual acuity reduced [Not Recovered/Not Resolved]
  - Vision blurred [Not Recovered/Not Resolved]
  - Eye pain [Not Recovered/Not Resolved]
  - Pyrexia [Recovered/Resolved]
  - Back pain [Not Recovered/Not Resolved]
  - Discomfort [Unknown]
  - Concomitant disease progression [Unknown]
